FAERS Safety Report 8008223-X (Version None)
Quarter: 2011Q4

REPORT INFORMATION
  Report Type: 
  Country: None (occurrence: None)
  Receive Date: 20111227
  Receipt Date: 20111222
  Transmission Date: 20120403
  Serious: Yes (Hospitalization)
  Sender: FDA-Public Use
  Company Number: DE-ROCHE-1020422

PATIENT
  Age: 48 Year
  Sex: Male

DRUGS (4)
  1. VEMURAFENIB [Suspect]
     Indication: MALIGNANT MELANOMA
     Dosage: DATE OF LAST DOSE PRIOR TO SAE: 01 DEC 2011.
     Route: 048
     Dates: start: 20110819
  2. METOPROLOL SUCCINATE [Concomitant]
     Dates: start: 20111108
  3. DEXAMETHASONE AND DEXAMETHASONE SODIUM PHOSPHATE [Suspect]
     Indication: PRODUCT USED FOR UNKNOWN INDICATION
     Dates: start: 20111207
  4. DEXAMETHASONE AND DEXAMETHASONE SODIUM PHOSPHATE [Suspect]
     Dates: start: 20111011

REACTIONS (1)
  - OESOPHAGEAL CANDIDIASIS [None]
